FAERS Safety Report 17401755 (Version 1)
Quarter: 2020Q1

REPORT INFORMATION
  Report Type: Spontaneous
  Country: US (occurrence: US)
  Receive Date: 20200127
  Receipt Date: 20200127
  Transmission Date: 20200409
  Serious: No
  Sender: FDA-Public Use
  Company Number: None

PATIENT
  Age: 38 Year
  Sex: Female

DRUGS (1)
  1. COSENTYX [Suspect]
     Active Substance: SECUKINUMAB
     Route: 058
     Dates: start: 20190712

REACTIONS (5)
  - Oropharyngeal pain [None]
  - Rhinorrhoea [None]
  - Pyrexia [None]
  - Ill-defined disorder [None]
  - Therapy cessation [None]

NARRATIVE: CASE EVENT DATE: 20200117
